FAERS Safety Report 7387191-8 (Version None)
Quarter: 2011Q1

REPORT INFORMATION
  Report Type: 
  Country: None (occurrence: None)
  Receive Date: 20110331
  Receipt Date: 20110325
  Transmission Date: 20110831
  Serious: Yes (Other)
  Sender: FDA-Public Use
  Company Number: B0708449A

PATIENT
  Sex: Male

DRUGS (5)
  1. MODOPAR [Suspect]
     Route: 048
  2. REQUIP [Suspect]
     Indication: PRODUCT USED FOR UNKNOWN INDICATION
     Dosage: 21MG PER DAY
     Route: 048
  3. MANTADIX [Suspect]
     Route: 048
  4. METFORMINE [Suspect]
     Route: 048
  5. STALEVO 100 [Suspect]
     Route: 048

REACTIONS (2)
  - SUDDEN ONSET OF SLEEP [None]
  - HYPOTONIA [None]
